FAERS Safety Report 13103360 (Version 1)
Quarter: 2017Q1

REPORT INFORMATION
  Report Type: Spontaneous
  Country: US (occurrence: US)
  Receive Date: 20170110
  Receipt Date: 20170110
  Transmission Date: 20170428
  Serious: No
  Sender: FDA-Public Use
  Company Number: US-TEVA-725486ACC

PATIENT

DRUGS (1)
  1. ACETAZOLAMIDE EXTENDED-RELEASE CAPSULES [Suspect]
     Active Substance: ACETAZOLAMIDE

REACTIONS (1)
  - Weight decreased [Unknown]
